FAERS Safety Report 17454520 (Version 7)
Quarter: 2022Q4

REPORT INFORMATION
  Report Type: Report from Study
  Country: US (occurrence: US)
  Receive Date: 20200225
  Receipt Date: 20221205
  Transmission Date: 20230113
  Serious: Yes (Other)
  Sender: FDA-Public Use
  Company Number: US-SHIRE-US202007102

PATIENT
  Sex: Male
  Weight: 58.957 kg

DRUGS (21)
  1. HUMAN IMMUNOGLOBULIN G [Suspect]
     Active Substance: HUMAN IMMUNOGLOBULIN G
     Indication: Immunodeficiency common variable
     Dosage: 16 GRAM, Q2WEEKS
     Route: 058
     Dates: start: 20190627
  2. HUMAN IMMUNOGLOBULIN G [Suspect]
     Active Substance: HUMAN IMMUNOGLOBULIN G
     Dosage: 16 GRAM, Q2WEEKS
     Route: 058
     Dates: start: 20190628
  3. HUMAN IMMUNOGLOBULIN G [Suspect]
     Active Substance: HUMAN IMMUNOGLOBULIN G
     Dosage: 16 GRAM, Q2WEEKS
     Route: 058
     Dates: start: 20190628
  4. HUMAN IMMUNOGLOBULIN G [Suspect]
     Active Substance: HUMAN IMMUNOGLOBULIN G
     Dosage: 16 GRAM, Q2WEEKS
     Route: 058
     Dates: start: 20190628
  5. LEVAQUIN [Concomitant]
     Active Substance: LEVOFLOXACIN
     Indication: Product used for unknown indication
  6. LEVAQUIN [Concomitant]
     Active Substance: LEVOFLOXACIN
     Indication: Product used for unknown indication
  7. MYORISAN [Concomitant]
     Active Substance: ISOTRETINOIN
     Indication: Product used for unknown indication
  8. ACETAMINOPHEN [Concomitant]
     Active Substance: ACETAMINOPHEN
     Indication: Product used for unknown indication
  9. ACETAMINOPHEN [Concomitant]
     Active Substance: ACETAMINOPHEN
     Indication: Product used for unknown indication
  10. DIPHENHYDRAMINE [Concomitant]
     Active Substance: DIPHENHYDRAMINE
     Indication: Product used for unknown indication
  11. LIDOCAINE [Concomitant]
     Active Substance: LIDOCAINE
     Indication: Product used for unknown indication
  12. LIDOCAINE [Concomitant]
     Active Substance: LIDOCAINE
     Indication: Product used for unknown indication
  13. EPINEPHRINE [Concomitant]
     Active Substance: EPINEPHRINE
     Indication: Product used for unknown indication
  14. ZYRTEC [Concomitant]
     Active Substance: CETIRIZINE HYDROCHLORIDE
     Indication: Product used for unknown indication
  15. ZYRTEC [Concomitant]
     Active Substance: CETIRIZINE HYDROCHLORIDE
     Indication: Product used for unknown indication
  16. PROPRANOLOL [Concomitant]
     Active Substance: PROPRANOLOL HYDROCHLORIDE
     Indication: Product used for unknown indication
  17. PROPRANOLOL [Concomitant]
     Active Substance: PROPRANOLOL HYDROCHLORIDE
     Indication: Product used for unknown indication
  18. LAMOTRIGINE [Concomitant]
     Active Substance: LAMOTRIGINE
     Indication: Product used for unknown indication
  19. ISOTRETINOIN [Concomitant]
     Active Substance: ISOTRETINOIN
     Indication: Product used for unknown indication
  20. LIDOCAINE\PRILOCAINE [Concomitant]
     Active Substance: LIDOCAINE\PRILOCAINE
     Indication: Product used for unknown indication
  21. LIDOCAINE\PRILOCAINE [Concomitant]
     Active Substance: LIDOCAINE\PRILOCAINE
     Indication: Product used for unknown indication

REACTIONS (7)
  - COVID-19 [Unknown]
  - Influenza [Unknown]
  - Sinusitis [Unknown]
  - Tooth disorder [Unknown]
  - Tooth infection [Unknown]
  - Gastroenteritis viral [Unknown]
  - Product dose omission issue [Unknown]
